FAERS Safety Report 10923082 (Version 1)
Quarter: 2015Q1

REPORT INFORMATION
  Report Type: Spontaneous
  Country: US (occurrence: US)
  Receive Date: 20150317
  Receipt Date: 20150317
  Transmission Date: 20150721
  Serious: Yes (Hospitalization, Other)
  Sender: FDA-Public Use
  Company Number: US-B.I. PHARMACEUTICALS,INC./RIDGEFIELD-2015-BI-12793BP

PATIENT
  Sex: Female

DRUGS (1)
  1. SPIRIVA [Suspect]
     Active Substance: TIOTROPIUM BROMIDE MONOHYDRATE
     Indication: CHRONIC OBSTRUCTIVE PULMONARY DISEASE
     Dosage: 18 MCG
     Route: 055

REACTIONS (8)
  - Abdominal pain [Recovered/Resolved]
  - Sepsis [Recovered/Resolved]
  - Pancreatitis acute [Not Recovered/Not Resolved]
  - Staphylococcal infection [None]
  - Fungal infection [None]
  - Pancreatic necrosis [Recovered/Resolved]
  - Fibromyalgia [Not Recovered/Not Resolved]
  - Pancreatic enzymes increased [Not Recovered/Not Resolved]

NARRATIVE: CASE EVENT DATE: 2011
